FAERS Safety Report 21786940 (Version 1)
Quarter: 2022Q4

REPORT INFORMATION
  Report Type: Report from Study
  Country: JP (occurrence: JP)
  Receive Date: 20221228
  Receipt Date: 20221228
  Transmission Date: 20230113
  Serious: Yes (Life-Threatening, Hospitalization, Other)
  Sender: FDA-Public Use
  Company Number: JP-GENZYME-THYM-1003163

PATIENT
  Age: 13 Year
  Sex: Male
  Weight: 43 kg

DRUGS (54)
  1. ANTI-THYMOCYTE GLOBULIN (RABBIT) NOS [Suspect]
     Active Substance: LAPINE T-LYMPHOCYTE IMMUNE GLOBULIN
     Indication: Stem cell transplant
     Dosage: 2.5 MG, QD
     Route: 041
     Dates: start: 20110125, end: 20110125
  2. ANTI-THYMOCYTE GLOBULIN (RABBIT) NOS [Suspect]
     Active Substance: LAPINE T-LYMPHOCYTE IMMUNE GLOBULIN
     Indication: Bone marrow conditioning regimen
     Dosage: 47.5 MG, QD
     Route: 041
     Dates: start: 20110125, end: 20110125
  3. ANTI-THYMOCYTE GLOBULIN (RABBIT) NOS [Suspect]
     Active Substance: LAPINE T-LYMPHOCYTE IMMUNE GLOBULIN
     Dosage: 50 MG, QD
     Route: 041
     Dates: start: 20110125, end: 20110126
  4. LENOGRASTIM [Suspect]
     Active Substance: LENOGRASTIM
     Indication: Bone marrow conditioning regimen
     Dosage: UNK
     Dates: start: 20210121, end: 20210121
  5. LENOGRASTIM [Suspect]
     Active Substance: LENOGRASTIM
     Indication: White blood cell count increased
     Dosage: UNK
     Dates: start: 20210128, end: 20210207
  6. LENOGRASTIM [Suspect]
     Active Substance: LENOGRASTIM
     Indication: Stem cell transplant
     Dosage: UNK
     Dates: start: 20210317, end: 20210405
  7. CYCLOPHOSPHAMIDE [Suspect]
     Active Substance: CYCLOPHOSPHAMIDE
     Indication: Bone marrow conditioning regimen
     Dosage: UNK
     Dates: start: 20110123, end: 20110124
  8. CYCLOPHOSPHAMIDE [Suspect]
     Active Substance: CYCLOPHOSPHAMIDE
     Indication: Stem cell transplant
  9. FLUDARABINE PHOSPHATE [Suspect]
     Active Substance: FLUDARABINE PHOSPHATE
     Indication: Acute myeloid leukaemia recurrent
     Dosage: UNK
     Route: 042
     Dates: start: 20110318, end: 20110321
  10. CYTARABINE [Suspect]
     Active Substance: CYTARABINE
     Indication: Bone marrow conditioning regimen
     Dosage: UNK
     Dates: start: 20110121, end: 20110122
  11. PIPERACILLIN SODIUM [Concomitant]
     Active Substance: PIPERACILLIN SODIUM
     Indication: Infection prophylaxis
     Dosage: UNK
     Route: 065
     Dates: start: 20110121, end: 20110129
  12. PIPERACILLIN SODIUM [Concomitant]
     Active Substance: PIPERACILLIN SODIUM
     Dosage: UNK
     Dates: start: 20110322, end: 20110325
  13. MEYLON [Concomitant]
     Active Substance: SODIUM BICARBONATE
     Indication: Prophylaxis
     Dosage: UNK
     Route: 065
     Dates: start: 20110121, end: 20110125
  14. MEYLON [Concomitant]
     Active Substance: SODIUM BICARBONATE
     Dosage: UNK
     Dates: start: 20110317, end: 20110323
  15. DIAMOX SEQUELS [Concomitant]
     Active Substance: ACETAZOLAMIDE
     Indication: Prophylaxis
     Dosage: UNK
     Route: 065
     Dates: start: 20110121, end: 20110323
  16. SOLU-CORTEF [Concomitant]
     Active Substance: HYDROCORTISONE SODIUM SUCCINATE
     Indication: Prophylaxis of nausea and vomiting
     Route: 065
     Dates: start: 20110121, end: 20110127
  17. SOLU-CORTEF [Concomitant]
     Active Substance: HYDROCORTISONE SODIUM SUCCINATE
     Dosage: UNK
     Dates: start: 20110313
  18. GASTER [Concomitant]
     Active Substance: FAMOTIDINE
     Indication: Prophylaxis
     Route: 065
     Dates: start: 20110121, end: 20110228
  19. GASTER [Concomitant]
     Active Substance: FAMOTIDINE
     Dosage: UNK
     Dates: start: 20110314
  20. FRAGMIN [Concomitant]
     Active Substance: DALTEPARIN SODIUM
     Indication: Prophylaxis
     Dosage: UNK
     Route: 065
     Dates: start: 20110121, end: 20110228
  21. FRAGMIN [Concomitant]
     Active Substance: DALTEPARIN SODIUM
     Dosage: UNK
     Dates: start: 20110314
  22. CYTARABINE [Concomitant]
     Active Substance: CYTARABINE
     Indication: Stem cell transplant
     Route: 065
     Dates: start: 20110121, end: 20110122
  23. LASIX [Concomitant]
     Active Substance: FUROSEMIDE
     Indication: Prophylaxis
     Dosage: UNK
     Route: 065
     Dates: start: 20110121, end: 20110308
  24. MESNA [Concomitant]
     Active Substance: MESNA
     Indication: Prophylaxis
     Route: 065
     Dates: start: 20110123, end: 20110125
  25. METHOTREXATE [Concomitant]
     Active Substance: METHOTREXATE
     Indication: Prophylaxis against graft versus host disease
     Route: 065
     Dates: start: 20110128, end: 20110128
  26. METHOTREXATE [Concomitant]
     Active Substance: METHOTREXATE
     Dosage: UNK
     Route: 065
     Dates: start: 20110130, end: 20110130
  27. METHOTREXATE [Concomitant]
     Active Substance: METHOTREXATE
     Dosage: UNK
     Route: 065
     Dates: start: 20110202, end: 20110202
  28. METHYLPREDNISOLONE SODIUM SUCCINATE [Concomitant]
     Active Substance: METHYLPREDNISOLONE SODIUM SUCCINATE
     Indication: Premedication
     Route: 065
     Dates: start: 20110125, end: 20110126
  29. PROGRAF [Concomitant]
     Active Substance: TACROLIMUS
     Indication: Prophylaxis against graft versus host disease
     Dosage: UNK
     Route: 065
     Dates: start: 20110126, end: 20110216
  30. PROGRAF [Concomitant]
     Active Substance: TACROLIMUS
     Dosage: UNK
     Dates: start: 20110216, end: 20110317
  31. ATARAX-P [HYDROXYZINE HYDROCHLORIDE] [Concomitant]
     Indication: Premedication
     Route: 065
     Dates: start: 20110125, end: 20110126
  32. PREDONINE [Concomitant]
     Active Substance: PREDNISOLONE
     Indication: Prophylaxis against graft versus host disease
     Route: 065
     Dates: start: 20110228, end: 20110305
  33. FULCALIQ [Concomitant]
     Active Substance: AMINO ACIDS\CARBOHYDRATES\ELECTROLYTES NOS\VITAMINS
     Indication: Nutritional supplementation
     Dosage: UNK
     Route: 065
     Dates: start: 20110128, end: 20110222
  34. FULCALIQ [Concomitant]
     Active Substance: AMINO ACIDS\CARBOHYDRATES\ELECTROLYTES NOS\VITAMINS
     Dosage: UNK
     Dates: start: 20110314
  35. ALLOPURINOL [Concomitant]
     Active Substance: ALLOPURINOL
     Indication: Prophylaxis
     Route: 065
     Dates: start: 20110305, end: 20110310
  36. ZOSYN [Concomitant]
     Active Substance: PIPERACILLIN SODIUM\TAZOBACTAM SODIUM
     Indication: Infection prophylaxis
     Route: 065
     Dates: start: 20110129, end: 20110214
  37. AMIKACIN SULFATE [Concomitant]
     Active Substance: AMIKACIN SULFATE
     Indication: Infection prophylaxis
     Route: 065
     Dates: start: 20110129, end: 20110214
  38. AMIKACIN SULFATE [Concomitant]
     Active Substance: AMIKACIN SULFATE
     Indication: Pyrexia
     Dosage: UNK
     Dates: start: 20110325
  39. AMIKACIN SULFATE [Concomitant]
     Active Substance: AMIKACIN SULFATE
     Indication: Klebsiella sepsis
  40. NEOPHAGEN [CYSTEINE;GLYCINE;GLYCYRRHIZIC ACID] [Concomitant]
     Indication: Prophylaxis
     Route: 065
     Dates: start: 20110329
  41. ZOVIRAX [Concomitant]
     Active Substance: ACYCLOVIR
     Indication: Infection prophylaxis
     Route: 065
     Dates: start: 20110121, end: 20110303
  42. VANCOMYCIN HYDROCHLORIDE [Concomitant]
     Active Substance: VANCOMYCIN HYDROCHLORIDE
     Indication: Infection prophylaxis
     Route: 065
     Dates: start: 20110121, end: 20110211
  43. VANCOMYCIN HYDROCHLORIDE [Concomitant]
     Active Substance: VANCOMYCIN HYDROCHLORIDE
     Indication: Klebsiella sepsis
     Dosage: UNK
     Dates: start: 20110325
  44. ICOSAPENT ETHYL [Concomitant]
     Active Substance: ICOSAPENT ETHYL
     Indication: Prophylaxis
     Route: 065
     Dates: start: 20110121
  45. URSO [Concomitant]
     Active Substance: URSODIOL
     Indication: Prophylaxis
     Route: 065
     Dates: start: 20110121
  46. ITRACONAZOLE [Concomitant]
     Active Substance: ITRACONAZOLE
     Indication: Infection prophylaxis
     Dosage: UNK
     Route: 065
     Dates: start: 20110227, end: 20110401
  47. GASTER [Concomitant]
     Active Substance: FAMOTIDINE
     Indication: Gastritis prophylaxis
     Route: 065
     Dates: start: 20110228, end: 20110305
  48. PLATELETS [Concomitant]
     Active Substance: HUMAN PLATELET, ALLOGENIC
     Indication: Acute myeloid leukaemia
     Dosage: UNK
     Route: 065
     Dates: start: 20110128, end: 20110213
  49. PLATELETS [Concomitant]
     Active Substance: HUMAN PLATELET, ALLOGENIC
     Dosage: UNK
     Dates: start: 20110314
  50. HUMAN RED BLOOD CELL [Concomitant]
     Active Substance: HUMAN RED BLOOD CELL
     Indication: Acute myeloid leukaemia
     Route: 065
     Dates: start: 20110208, end: 20110208
  51. HUMAN RED BLOOD CELL [Concomitant]
     Active Substance: HUMAN RED BLOOD CELL
     Dosage: UNK
     Dates: start: 20110322
  52. GLYCYRRHIZIN [Concomitant]
     Active Substance: GLYCYRRHIZIN
  53. CYSTEINE HYDROCHLORIDE;ENOXOLONE;GLYCINE [Concomitant]
  54. ICOSAPENT ETHYL [Concomitant]
     Active Substance: ICOSAPENT ETHYL
     Dosage: UNK
     Dates: start: 20110121

REACTIONS (8)
  - Disseminated intravascular coagulation [Recovered/Resolved]
  - Acute myeloid leukaemia recurrent [Recovered/Resolved]
  - Klebsiella sepsis [Recovered/Resolved]
  - Hypertension [Recovered/Resolved]
  - Stomatitis [Recovered/Resolved]
  - Nausea [Recovered/Resolved]
  - Pyrexia [Recovered/Resolved]
  - Pyrexia [Recovered/Resolved]

NARRATIVE: CASE EVENT DATE: 20110125
